FAERS Safety Report 4332659-1 (Version None)
Quarter: 2004Q1

REPORT INFORMATION
  Report Type: 
  Country: None (occurrence: None)
  Receive Date: 20040330
  Receipt Date: 20040311
  Transmission Date: 20041129
  Serious: Yes (Other)
  Sender: FDA-Public Use
  Company Number: T04-AUT-01296-01

PATIENT
  Age: 78 Year
  Sex: Male

DRUGS (5)
  1. AXURA (DOUBLE BLIND) (MEMANTINE HYDROCHLORIDE) [Suspect]
     Indication: DEMENTIA ALZHEIMER'S TYPE
     Dosage: 10 MG BID PO
     Route: 048
     Dates: start: 20030909
  2. SIMVASTATIN [Concomitant]
  3. CITALOPRAM HYDROBROMIDE [Concomitant]
  4. OXYBUTYNIN [Concomitant]
  5. ASPIRIN [Concomitant]

REACTIONS (1)
  - ADENOCARCINOMA [None]
